APPROVED DRUG PRODUCT: MOMETASONE FUROATE
Active Ingredient: MOMETASONE FUROATE
Strength: 0.05MG/SPRAY
Dosage Form/Route: SPRAY, METERED;NASAL
Application: A091161 | Product #001 | TE Code: AB
Applicant: APOTEX INC
Approved: Mar 22, 2016 | RLD: No | RS: Yes | Type: RX